FAERS Safety Report 13542480 (Version 1)
Quarter: 2017Q2

REPORT INFORMATION
  Report Type: Spontaneous
  Country: US (occurrence: US)
  Receive Date: 20170512
  Receipt Date: 20170512
  Transmission Date: 20170830
  Serious: Yes (Other)
  Sender: FDA-Public Use
  Company Number: US-ROCHE-734423

PATIENT
  Sex: Male
  Weight: 93.4 kg

DRUGS (9)
  1. CARBOPLATIN. [Concomitant]
     Active Substance: CARBOPLATIN
     Dosage: DOSE:550
     Route: 065
  2. CISPLATIN. [Concomitant]
     Active Substance: CISPLATIN
     Dosage: DOSE: 60MG/M2
     Route: 065
     Dates: start: 20101116, end: 20101228
  3. AVASTIN [Suspect]
     Active Substance: BEVACIZUMAB
     Indication: NON-SMALL CELL LUNG CANCER
     Dosage: TREATMENT DISCONTINUED:02 NOVEMBER 2010?FORM:INFUSION, DOSE :15 MG/KG
     Route: 042
     Dates: start: 20100914, end: 20101026
  4. ALIMTA [Concomitant]
     Active Substance: PEMETREXED DISODIUM
     Dosage: DOSE: 500 MG/M2
     Route: 065
     Dates: start: 20101116, end: 20101228
  5. CARBOPLATIN. [Concomitant]
     Active Substance: CARBOPLATIN
     Route: 065
  6. CARBOPLATIN. [Suspect]
     Active Substance: CARBOPLATIN
     Indication: NON-SMALL CELL LUNG CANCER
     Dosage: DOSE: AUC 5
     Route: 065
     Dates: start: 20100914, end: 20101026
  7. TAXOTERE [Concomitant]
     Active Substance: DOCETAXEL
     Dosage: DOSE: 75 MG/M2
     Route: 065
     Dates: start: 20100914, end: 20101026
  8. TAXOL [Suspect]
     Active Substance: PACLITAXEL
     Indication: NON-SMALL CELL LUNG CANCER
     Route: 065
  9. CARBOPLATIN. [Concomitant]
     Active Substance: CARBOPLATIN
     Route: 065

REACTIONS (3)
  - Rectal haemorrhage [Unknown]
  - Abdominal pain [Unknown]
  - Skin mass [Unknown]
